FAERS Safety Report 6729955-7 (Version None)
Quarter: 2010Q2

REPORT INFORMATION
  Report Type: 
  Country: None (occurrence: None)
  Receive Date: 20100513
  Receipt Date: 20100428
  Transmission Date: 20101027
  Serious: Yes (Hospitalization, Disabling)
  Sender: FDA-Public Use
  Company Number: 2010PV000005

PATIENT
  Age: 60 Year
  Sex: Male

DRUGS (7)
  1. DEPOCYT [Suspect]
     Indication: METASTASES TO MENINGES
     Dosage: 50 MG;1X;INTH
     Route: 037
     Dates: start: 20100302, end: 20100316
  2. METHYLPREDNISOLONE [Concomitant]
  3. LEVETIRACETAM [Concomitant]
  4. LAMOTRIGINE [Concomitant]
  5. CLOBAZAM [Concomitant]
  6. CALCIUM CARBONATE [Concomitant]
  7. ENOXAPARIN SODIUM [Concomitant]

REACTIONS (7)
  - ARACHNOIDITIS [None]
  - FATIGUE [None]
  - HEADACHE [None]
  - NAUSEA [None]
  - RADICULAR PAIN [None]
  - RADICULITIS [None]
  - VOMITING [None]
